FAERS Safety Report 6357099-5 (Version None)
Quarter: 2009Q3

REPORT INFORMATION
  Report Type: 
  Country: None (occurrence: None)
  Receive Date: 20090910
  Receipt Date: 20090825
  Transmission Date: 20100115
  Serious: Yes (Death, Hospitalization)
  Sender: FDA-Public Use
  Company Number: 2009AL003854

PATIENT
  Age: 63 Year
  Sex: Male

DRUGS (9)
  1. DIGOXIN [Suspect]
     Dosage: 0.125MG, DAILY, PO
     Route: 048
  2. ASPIRIN [Concomitant]
  3. PLAVIX [Concomitant]
  4. CRESTOR [Concomitant]
  5. TRICOR [Concomitant]
  6. TOPROL-XL [Concomitant]
  7. COUMADIN [Concomitant]
  8. LASIX [Concomitant]
  9. ACTOS [Concomitant]

REACTIONS (6)
  - ACUTE MYOCARDIAL INFARCTION [None]
  - ATRIAL FIBRILLATION [None]
  - DYSPNOEA [None]
  - INJURY [None]
  - SURGERY [None]
  - TYPE 2 DIABETES MELLITUS [None]
